FAERS Safety Report 11181676 (Version 1)
Quarter: 2015Q2

REPORT INFORMATION
  Report Type: Not Available
  Country: GB (occurrence: GB)
  Receive Date: 20150611
  Receipt Date: 20150611
  Transmission Date: 20150821
  Serious: Yes (Life-Threatening, Hospitalization, Other)
  Sender: FDA-Public Use
  Company Number: GB-MUNDIPHARMA DS AND PHARMACOVIGILANCE-GBR-2015-0028623

PATIENT
  Age: 50 Year
  Sex: Female
  Weight: 105.7 kg

DRUGS (29)
  1. MACROGOL [Concomitant]
     Active Substance: POLYETHYLENE GLYCOLS
  2. PARACETAMOL [Concomitant]
     Active Substance: ACETAMINOPHEN
  3. SIMVASTATIN. [Concomitant]
     Active Substance: SIMVASTATIN
  4. VANIQA                             /00936002/ [Concomitant]
  5. VENTOLIN [Concomitant]
     Active Substance: ALBUTEROL SULFATE
  6. ZOMORPH [Concomitant]
     Active Substance: MORPHINE SULFATE
     Indication: PAIN
  7. GAVISCON [Concomitant]
     Active Substance: ALUMINUM HYDROXIDE\MAGNESIUM CARBONATE
  8. NOVOMIX [Concomitant]
     Active Substance: INSULIN ASPART
  9. PREGABALIN. [Concomitant]
     Active Substance: PREGABALIN
  10. SALMETEROL/FLUTICASONPROPIONAAT [Concomitant]
     Active Substance: SALMETEROL
  11. SERTRALINE [Concomitant]
     Active Substance: SERTRALINE HYDROCHLORIDE
  12. SOLIFENACIN [Concomitant]
     Active Substance: SOLIFENACIN
  13. THIAMINE [Concomitant]
     Active Substance: THIAMINE
  14. BACLOFEN. [Concomitant]
     Active Substance: BACLOFEN
  15. CLOPIDOGREL [Concomitant]
     Active Substance: CLOPIDOGREL BISULFATE
  16. HYPROMELLOSE [Concomitant]
     Active Substance: HYPROMELLOSES
  17. ONDANSETRON [Concomitant]
     Active Substance: ONDANSETRON
  18. MST CONTINUS TABLETS 30 MG [Suspect]
     Active Substance: MORPHINE SULFATE
     Indication: PAIN
     Dosage: 60 MG, BID
     Route: 048
     Dates: start: 20150406, end: 20150509
  19. AMITRIPTYLINE [Concomitant]
     Active Substance: AMITRIPTYLINE
  20. GLYCERYL TRINITRATE [Concomitant]
     Active Substance: NITROGLYCERIN
  21. NARATRIPTAN [Concomitant]
     Active Substance: NARATRIPTAN HYDROCHLORIDE
  22. BISACODYL. [Concomitant]
     Active Substance: BISACODYL
  23. HYOSCINE BUTYLBROMIDE [Concomitant]
     Active Substance: BUTYLSCOPOLAMINE
  24. LANSOPRAZOLE. [Concomitant]
     Active Substance: LANSOPRAZOLE
  25. VITAMIN B COMPOUND                 /00212701/ [Concomitant]
  26. DOCUSATE [Concomitant]
     Active Substance: DOCUSATE
  27. MORPHINE SULFATE. [Concomitant]
     Active Substance: MORPHINE SULFATE
  28. PEPPERMINT OIL [Concomitant]
     Active Substance: PEPPERMINT OIL
  29. RAMIPRIL. [Concomitant]
     Active Substance: RAMIPRIL

REACTIONS (12)
  - Visual impairment [Recovered/Resolved]
  - Respiratory arrest [Recovered/Resolved]
  - Consciousness fluctuating [Recovered/Resolved]
  - Oscillopsia [Recovered/Resolved]
  - Dizziness [Recovered/Resolved]
  - Dyspnoea [Recovered/Resolved]
  - Tachycardia [Recovered/Resolved]
  - Nausea [Recovered/Resolved]
  - Vomiting [Recovered/Resolved]
  - Somnolence [Recovered/Resolved]
  - Product substitution issue [Unknown]
  - Fatigue [Recovered/Resolved]

NARRATIVE: CASE EVENT DATE: 20150406
